FAERS Safety Report 10013603 (Version 3)
Quarter: 2014Q2

REPORT INFORMATION
  Report Type: Spontaneous
  Country: FR (occurrence: FR)
  Receive Date: 20140315
  Receipt Date: 20140521
  Transmission Date: 20141212
  Serious: Yes (Other)
  Sender: FDA-Public Use
  Company Number: FR-ROCHE-1359529

PATIENT
  Age: 44 Year
  Sex: Female
  Weight: 70 kg

DRUGS (9)
  1. PERJETA [Suspect]
     Indication: BREAST CANCER METASTATIC
     Route: 042
     Dates: start: 20140303, end: 20140303
  2. PERJETA [Suspect]
     Dosage: CYCLE 2
     Route: 042
  3. PERJETA [Suspect]
     Dosage: CYCLE 3
     Route: 042
     Dates: start: 20140324
  4. POLARAMINE [Suspect]
     Indication: PRODUCT USED FOR UNKNOWN INDICATION
     Route: 042
     Dates: start: 20140303, end: 20140303
  5. AZANTAC [Concomitant]
     Indication: PREMEDICATION
     Route: 042
     Dates: start: 20140303, end: 20140303
  6. HERCEPTIN [Concomitant]
     Route: 065
  7. AERIUS [Concomitant]
  8. TAXOTERE [Concomitant]
  9. SOLUPRED (FRANCE) [Concomitant]

REACTIONS (11)
  - Chills [Recovered/Resolved]
  - Hypotension [Recovered/Resolved]
  - Hyperhidrosis [Recovered/Resolved]
  - Tachycardia [Recovered/Resolved]
  - Rash [Recovered/Resolved]
  - Erythema [Recovered/Resolved]
  - Rash erythematous [Unknown]
  - Heart rate increased [Unknown]
  - Body temperature decreased [Unknown]
  - Oxygen saturation decreased [Unknown]
  - Hypersensitivity [Unknown]
